FAERS Safety Report 5333715-1 (Version None)
Quarter: 2007Q2

REPORT INFORMATION
  Report Type: 
  Country: None (occurrence: None)
  Receive Date: 20070524
  Receipt Date: 20070514
  Transmission Date: 20071010
  Serious: Yes (Death, Hospitalization)
  Sender: FDA-Public Use
  Company Number: B0471827A

PATIENT
  Age: 92 Year
  Sex: Male
  Weight: 52 kg

DRUGS (9)
  1. ARIXTRA [Suspect]
     Dosage: 5MG PER DAY
     Route: 058
     Dates: start: 20070225, end: 20070309
  2. EQUANIL [Concomitant]
     Dosage: 250MG PER DAY
     Route: 048
     Dates: start: 20061001, end: 20070312
  3. LASIX [Concomitant]
     Dosage: 40MG PER DAY
     Route: 048
     Dates: end: 20070312
  4. PYOSTACINE [Concomitant]
     Indication: ERYSIPELAS
     Dosage: 500MG FOUR TIMES PER DAY
     Route: 048
     Dates: start: 20070225, end: 20070310
  5. TRIATEC [Concomitant]
     Dosage: 1.25MG TWICE PER DAY
     Route: 048
     Dates: end: 20070312
  6. IMOVANE [Concomitant]
     Indication: SLEEP DISORDER
     Dosage: 3.75MG PER DAY
     Route: 048
     Dates: start: 20061001, end: 20070312
  7. PENICILLIN G [Concomitant]
     Indication: ERYSIPELAS
     Route: 042
     Dates: start: 20070310
  8. TADENAN [Concomitant]
  9. DOMPERIDONE [Concomitant]

REACTIONS (7)
  - ANAEMIA [None]
  - COMA [None]
  - DEATH [None]
  - HAEMATOMA [None]
  - INCORRECT DOSE ADMINISTERED [None]
  - NERVOUS SYSTEM DISORDER [None]
  - RESPIRATORY DISORDER [None]
